FAERS Safety Report 11262888 (Version 1)
Quarter: 2015Q3

REPORT INFORMATION
  Report Type: Report from Study
  Country: US (occurrence: US)
  Receive Date: 20150710
  Receipt Date: 20150710
  Transmission Date: 20151125
  Serious: Yes (Disabling)
  Sender: FDA-Public Use
  Company Number: US-ELI_LILLY_AND_COMPANY-US201506010842

PATIENT
  Sex: Female

DRUGS (2)
  1. DULOXETINE HYDROCHLORIDE. [Suspect]
     Active Substance: DULOXETINE HYDROCHLORIDE
     Indication: FIBROMYALGIA
     Dosage: 40 MG, BID
     Route: 065
     Dates: start: 2013
  2. DULOXETINE HYDROCHLORIDE. [Suspect]
     Active Substance: DULOXETINE HYDROCHLORIDE
     Indication: MYALGIA

REACTIONS (29)
  - Herpes zoster [Unknown]
  - Musculoskeletal stiffness [Unknown]
  - Tendon rupture [Unknown]
  - Anxiety [Unknown]
  - Joint stiffness [Unknown]
  - Pollakiuria [Unknown]
  - Body height decreased [Unknown]
  - Wrist fracture [Not Recovered/Not Resolved]
  - Mental impairment [Not Recovered/Not Resolved]
  - Swelling [Unknown]
  - Nephrolithiasis [Unknown]
  - Balance disorder [Unknown]
  - Depression [Not Recovered/Not Resolved]
  - Dizziness [Unknown]
  - Hypoaesthesia [Unknown]
  - Cough [Unknown]
  - Pain [Unknown]
  - Migraine [Unknown]
  - Irritability [Unknown]
  - Memory impairment [Not Recovered/Not Resolved]
  - Incontinence [Unknown]
  - Spinal osteoarthritis [Unknown]
  - Asthma [Unknown]
  - Dehydration [Unknown]
  - Fall [Unknown]
  - Joint injury [Unknown]
  - Back injury [Unknown]
  - Anger [Unknown]
  - Insomnia [Unknown]
